FAERS Safety Report 4979580-3 (Version None)
Quarter: 2006Q2

REPORT INFORMATION
  Report Type: 
  Country: None (occurrence: None)
  Receive Date: 20060421
  Receipt Date: 20060206
  Transmission Date: 20061013
  Serious: Yes (Other)
  Sender: FDA-Public Use
  Company Number: US-ROCHE-435395

PATIENT
  Age: 52 Year
  Sex: Male

DRUGS (8)
  1. PEGASYS [Suspect]
     Route: 058
     Dates: start: 20060105, end: 20060215
  2. PEGASYS [Suspect]
     Route: 058
     Dates: start: 20060215
  3. COPEGUS [Suspect]
     Route: 048
     Dates: start: 20060105, end: 20060215
  4. COPEGUS [Suspect]
     Route: 048
     Dates: start: 20060215
  5. COPEGUS [Suspect]
     Route: 048
  6. PROGRAF [Concomitant]
     Indication: LIVER TRANSPLANT
     Route: 048
  7. PROTONIX [Concomitant]
     Route: 048
  8. ASPIRIN [Concomitant]
     Route: 048

REACTIONS (13)
  - ANGER [None]
  - ANOREXIA [None]
  - ANXIETY [None]
  - ARTHRALGIA [None]
  - DIARRHOEA [None]
  - DYSPNOEA EXERTIONAL [None]
  - FATIGUE [None]
  - IRRITABILITY [None]
  - MOOD ALTERED [None]
  - MYALGIA [None]
  - NAUSEA [None]
  - PRURITUS GENERALISED [None]
  - RETINAL TEAR [None]
